FAERS Safety Report 7586074-8 (Version None)
Quarter: 2011Q2

REPORT INFORMATION
  Report Type: 
  Country: None (occurrence: None)
  Receive Date: 20110629
  Receipt Date: 20110629
  Transmission Date: 20111010
  Serious: Yes (Death)
  Sender: FDA-Public Use
  Company Number: None

PATIENT
  Sex: Male
  Weight: 82.1 kg

DRUGS (14)
  1. ERBITUX [Suspect]
  2. MAGIC MOUTHWASH -CONTAINS NYSTATIN/BENADRYL/MAALOX- [Concomitant]
  3. DEXTROSE 5%/NACL [Concomitant]
  4. ERBITUX [Suspect]
  5. MORPHINE [Concomitant]
  6. MIRALAX [Concomitant]
  7. PROCHLORPERAZINE TAB [Concomitant]
  8. PROMETHAZINE [Concomitant]
  9. ONDANSETRON [Concomitant]
  10. PANTOPRAZOLE [Concomitant]
  11. ERBITUX [Suspect]
     Indication: TONGUE NEOPLASM MALIGNANT STAGE UNSPECIFIED
     Dosage: 784MG -~26MG IN BEFORE DC- 1X IV DRIP
     Route: 041
     Dates: start: 20110624, end: 20110624
  12. DALTEPARIN SODIUM [Concomitant]
  13. METOCLOPRAMIDE [Concomitant]
  14. DIPHENHYDRAMINE HCL [Concomitant]

REACTIONS (8)
  - VOMITING [None]
  - CARDIO-RESPIRATORY ARREST [None]
  - NAUSEA [None]
  - FAILURE TO THRIVE [None]
  - CARDIAC ARREST [None]
  - DEHYDRATION [None]
  - DYSPNOEA [None]
  - DYSKINESIA [None]
